FAERS Safety Report 10308478 (Version 2)
Quarter: 2014Q3

REPORT INFORMATION
  Report Type: Report from Study
  Country: CN (occurrence: CN)
  Receive Date: 20140716
  Receipt Date: 20140728
  Transmission Date: 20150326
  Serious: Yes (Hospitalization, Other)
  Sender: FDA-Public Use
  Company Number: PHHY2014CN085540

PATIENT
  Sex: Male

DRUGS (2)
  1. GLIVEC [Suspect]
     Active Substance: IMATINIB MESYLATE
     Indication: CHRONIC MYELOID LEUKAEMIA
     Dosage: 600 MG, QD
  2. ERYTHROPOIETIN [Concomitant]
     Active Substance: ERYTHROPOIETIN
     Dosage: UNK UKN, UNK

REACTIONS (8)
  - Epilepsy [Recovering/Resolving]
  - Blast crisis in myelogenous leukaemia [Unknown]
  - Pancytopenia [Unknown]
  - Erythema [Unknown]
  - Rash generalised [Unknown]
  - Rash [Unknown]
  - Cerebral haemorrhage [Unknown]
  - Drug intolerance [Unknown]

NARRATIVE: CASE EVENT DATE: 2009
